FAERS Safety Report 8467830-0 (Version None)
Quarter: 2012Q2

REPORT INFORMATION
  Report Type: 
  Country: None (occurrence: None)
  Receive Date: 20120626
  Receipt Date: 20120621
  Transmission Date: 20120825
  Serious: Yes (Life-Threatening, Hospitalization)
  Sender: FDA-Public Use
  Company Number: US-GLAXOSMITHKLINE-A0982196A

PATIENT
  Age: 28 Year
  Sex: Female

DRUGS (1)
  1. LAMICTAL [Suspect]
     Indication: AFFECTIVE DISORDER
     Route: 048
     Dates: start: 20090101, end: 20091201

REACTIONS (12)
  - DEEP VEIN THROMBOSIS [None]
  - VULVOVAGINAL MYCOTIC INFECTION [None]
  - LACRIMAL DISORDER [None]
  - HYPOKALAEMIA [None]
  - TACHYCARDIA [None]
  - DRUG HYPERSENSITIVITY [None]
  - THROMBOCYTOSIS [None]
  - POST-TRAUMATIC STRESS DISORDER [None]
  - HAEMOLYTIC ANAEMIA [None]
  - URINARY TRACT INFECTION [None]
  - STEVENS-JOHNSON SYNDROME [None]
  - TOXIC EPIDERMAL NECROLYSIS [None]
